FAERS Safety Report 11611105 (Version 1)
Quarter: 2015Q4

REPORT INFORMATION
  Report Type: Spontaneous
  Country: GB (occurrence: GB)
  Receive Date: 20151008
  Receipt Date: 20151008
  Transmission Date: 20160304
  Serious: Yes (Life-Threatening, Hospitalization)
  Sender: FDA-Public Use
  Company Number: GB-CIPLA LTD.-2015GB07795

PATIENT

DRUGS (7)
  1. BENDROFLUMETHIAZIDE [Suspect]
     Active Substance: BENDROFLUMETHIAZIDE
     Dosage: 2.5 MG, UNK
     Route: 048
     Dates: start: 19991231, end: 20150910
  2. LISINOPRIL. [Suspect]
     Active Substance: LISINOPRIL
     Dosage: 20 MG, BID
     Route: 048
     Dates: start: 20140101, end: 20150910
  3. ASPIRIN. [Concomitant]
     Active Substance: ASPIRIN
     Dosage: 75 MG, QD
     Route: 048
     Dates: start: 20140101
  4. DIAZEPAM. [Concomitant]
     Active Substance: DIAZEPAM
     Dosage: 2 MG, AS NECESSARY , MAX 4MG DAILY
     Route: 048
     Dates: start: 20150825, end: 20150909
  5. SIMVASTATIN. [Concomitant]
     Active Substance: SIMVASTATIN
     Dosage: 40 MG, QD
     Route: 065
     Dates: start: 20131227
  6. SERTRALINE [Suspect]
     Active Substance: SERTRALINE HYDROCHLORIDE
     Indication: DEPRESSION
     Dosage: 50 MG, QD
     Route: 048
     Dates: start: 20150903, end: 20150910
  7. ATENOLOL. [Concomitant]
     Active Substance: ATENOLOL
     Dosage: 100 MG, QD, IN MORNING
     Route: 048
     Dates: start: 20140101

REACTIONS (10)
  - VIIth nerve paralysis [Recovering/Resolving]
  - Hyponatraemia [Recovering/Resolving]
  - Vomiting [Recovering/Resolving]
  - Dysarthria [Recovering/Resolving]
  - Hypokalaemia [Recovering/Resolving]
  - Nausea [Recovered/Resolved]
  - Lid lag [Recovering/Resolving]
  - Blood magnesium decreased [Recovering/Resolving]
  - Drug interaction [Unknown]
  - Confusional state [Recovering/Resolving]

NARRATIVE: CASE EVENT DATE: 20150909
